FAERS Safety Report 24535878 (Version 1)
Quarter: 2024Q4

REPORT INFORMATION
  Report Type: Report from Study
  Country: US (occurrence: US)
  Receive Date: 20241022
  Receipt Date: 20241022
  Transmission Date: 20250115
  Serious: Yes (Hospitalization, Other)
  Sender: JAZZ
  Company Number: US-JAZZ PHARMACEUTICALS-2024-US-009115

PATIENT
  Sex: Male

DRUGS (1)
  1. XYWAV [Suspect]
     Active Substance: CALCIUM OXYBATE\MAGNESIUM OXYBATE\POTASSIUM OXYBATE\SODIUM OXYBATE
     Indication: Hypersomnia
     Dosage: 6 GRAM, QD

REACTIONS (6)
  - Blood pressure increased [Recovered/Resolved]
  - Limb discomfort [Unknown]
  - Chest discomfort [Unknown]
  - Palpitations [Unknown]
  - Blood cholesterol increased [Unknown]
  - Weight increased [Unknown]
